FAERS Safety Report 14504290 (Version 1)
Quarter: 2018Q1

REPORT INFORMATION
  Report Type: Spontaneous
  Country: US (occurrence: US)
  Receive Date: 20180208
  Receipt Date: 20180208
  Transmission Date: 20180509
  Serious: No
  Sender: FDA-Public Use
  Company Number: US-JNJFOC-20171206377

PATIENT
  Sex: Male

DRUGS (1)
  1. TYLENOL COLD PLUS SORE THROAT EXTRA STRENGTH [Suspect]
     Active Substance: ACETAMINOPHEN
     Indication: OROPHARYNGEAL PAIN
     Dosage: 2 TABLESPOONFUL
     Route: 048
     Dates: start: 20171202, end: 20171202

REACTIONS (3)
  - Feeling abnormal [Unknown]
  - Expired product administered [Unknown]
  - Nervousness [Unknown]

NARRATIVE: CASE EVENT DATE: 20171202
